FAERS Safety Report 11876848 (Version 3)
Quarter: 2016Q1

REPORT INFORMATION
  Report Type: Report from Study
  Country: US (occurrence: US)
  Receive Date: 20151229
  Receipt Date: 20160204
  Transmission Date: 20160526
  Serious: Yes (Hospitalization)
  Sender: FDA-Public Use
  Company Number: US-NOVOPROD-474945

PATIENT
  Age: 56 Year
  Sex: Female
  Weight: 82.36 kg

DRUGS (1)
  1. INSULIN DETEMIR PDS290 [Suspect]
     Active Substance: INSULIN DETEMIR
     Indication: TYPE 2 DIABETES MELLITUS
     Dosage: 110 U, BID
     Route: 058
     Dates: start: 2013, end: 20151228

REACTIONS (1)
  - Myocardial infarction [Recovering/Resolving]

NARRATIVE: CASE EVENT DATE: 20151228
